FAERS Safety Report 9256967 (Version 2)
Quarter: 2013Q2

REPORT INFORMATION
  Report Type: Spontaneous
  Country: FR (occurrence: None)
  Receive Date: 20130424
  Receipt Date: 20130611
  Transmission Date: 20140414
  Serious: Yes (Hospitalization)
  Sender: FDA-Public Use
  Company Number: IND1-FR-2013-0031

PATIENT
  Age: 48 Year
  Sex: Male

DRUGS (3)
  1. CHRONO-INDOCID [Suspect]
     Indication: PSORIATIC ARTHROPATHY
     Route: 048
     Dates: start: 20130121, end: 20130128
  2. INDOCID [Suspect]
     Indication: PAIN
     Dosage: AS REQUIRED
     Route: 048
     Dates: start: 20130121, end: 20130128
  3. OGASTORO [Concomitant]

REACTIONS (2)
  - Hypertension [None]
  - Off label use [None]
